FAERS Safety Report 10311188 (Version 1)
Quarter: 2014Q3

REPORT INFORMATION
  Report Type: Spontaneous
  Country: US (occurrence: None)
  Receive Date: 20140716
  Receipt Date: 20140716
  Transmission Date: 20150326
  Serious: Yes (Other)
  Sender: FDA-Public Use
  Company Number: None

PATIENT
  Age: 49 Year
  Sex: Female

DRUGS (1)
  1. VALSARTAN. [Suspect]
     Active Substance: VALSARTAN
     Indication: HYPERTENSION
     Dosage: 1 TABLET QD ORAL??7/12/13-1 TIME
     Route: 048
     Dates: start: 20130712

REACTIONS (5)
  - Headache [None]
  - Product substitution issue [None]
  - Dizziness [None]
  - Chest discomfort [None]
  - Limb discomfort [None]

NARRATIVE: CASE EVENT DATE: 20140712
